FAERS Safety Report 13901074 (Version 1)
Quarter: 2017Q3

REPORT INFORMATION
  Report Type: Spontaneous
  Country: US (occurrence: None)
  Receive Date: 20170818
  Receipt Date: 20170818
  Transmission Date: 20171127
  Serious: Yes (Life-Threatening, Disabling)
  Sender: FDA-Public Use
  Company Number: None

PATIENT
  Age: 73 Year
  Sex: Male
  Weight: 98.88 kg

DRUGS (17)
  1. FINATRIDE [Concomitant]
  2. LISINOPRIL. [Concomitant]
     Active Substance: LISINOPRIL
  3. TRAZODONE [Suspect]
     Active Substance: TRAZODONE HYDROCHLORIDE
     Indication: SLEEP DISORDER
     Dosage: ?          QUANTITY:1 ;?
     Route: 048
     Dates: start: 20170717, end: 20170718
  4. LINZESS [Concomitant]
     Active Substance: LINACLOTIDE
  5. TAMSULOSIN [Concomitant]
     Active Substance: TAMSULOSIN
  6. ASPIRIN EC [Concomitant]
     Active Substance: ASPIRIN
  7. FLUNISOLIDE. [Concomitant]
     Active Substance: FLUNISOLIDE
  8. PRIMIDONE. [Concomitant]
     Active Substance: PRIMIDONE
  9. MELATONIN [Concomitant]
     Active Substance: MELATONIN
  10. TOPAL [Concomitant]
     Active Substance: ALGINIC ACID\ALUMINUM HYDROXIDE\MAGNESIUM CARBONATE
  11. OMEGA 3 [Concomitant]
     Active Substance: OMEGA-3 FATTY ACIDS
  12. LOMOTIGINE [Concomitant]
  13. FEXOFENADINE [Concomitant]
     Active Substance: FEXOFENADINE\FEXOFENADINE HYDROCHLORIDE
  14. ATORVASTATIN [Concomitant]
     Active Substance: ATORVASTATIN
  15. GABAPEN [Concomitant]
     Active Substance: GABAPENTIN
  16. GEODON [Concomitant]
     Active Substance: ZIPRASIDONE HYDROCHLORIDE\ZIPRASIDONE MESYLATE
  17. LACTULOSE. [Concomitant]
     Active Substance: LACTULOSE

REACTIONS (4)
  - Incorrect dose administered [None]
  - Hangover [None]
  - Drug dispensing error [None]
  - Hypersomnia [None]

NARRATIVE: CASE EVENT DATE: 20170717
